FAERS Safety Report 21179271 (Version 1)
Quarter: 2022Q3

REPORT INFORMATION
  Report Type: Report from Study
  Country: US (occurrence: US)
  Receive Date: 20220805
  Receipt Date: 20220805
  Transmission Date: 20221027
  Serious: Yes (Other)
  Sender: FDA-Public Use
  Company Number: US-JAZZ-2022-US-022067

PATIENT
  Age: 23 Year
  Sex: Male

DRUGS (4)
  1. XYWAV [Suspect]
     Active Substance: CALCIUM OXYBATE\MAGNESIUM OXYBATE\POTASSIUM OXYBATE\SODIUM OXYBATE
     Indication: Hypersomnia
     Dosage: UNK
     Dates: start: 202111
  2. CUVITRU [Concomitant]
     Active Substance: HUMAN IMMUNOGLOBULIN G
     Indication: Product used for unknown indication
     Dosage: 0000
     Dates: start: 20220201
  3. SEROQUEL [Concomitant]
     Active Substance: QUETIAPINE FUMARATE
     Indication: Product used for unknown indication
     Dosage: 0000
     Dates: start: 20220623
  4. CLARITINE ALLERGY [Concomitant]
     Indication: Hypersensitivity
     Dosage: 0000
     Dates: start: 20110101

REACTIONS (3)
  - Suicide attempt [Unknown]
  - Suicidal ideation [Unknown]
  - Affective disorder [Unknown]

NARRATIVE: CASE EVENT DATE: 20220619
